FAERS Safety Report 14312750 (Version 1)
Quarter: 2017Q4

REPORT INFORMATION
  Report Type: Spontaneous
  Country: US (occurrence: US)
  Receive Date: 20171220
  Receipt Date: 20171220
  Transmission Date: 20180321
  Serious: Yes (Death)
  Sender: FDA-Public Use
  Company Number: None

PATIENT
  Age: 58 Year
  Sex: Female

DRUGS (2)
  1. NPLATE [Suspect]
     Active Substance: ROMIPLOSTIM
     Indication: APLASTIC ANAEMIA
     Route: 058
     Dates: start: 20170117, end: 20171206
  2. NPLATE [Suspect]
     Active Substance: ROMIPLOSTIM
     Indication: HYPERPARATHYROIDISM SECONDARY
     Route: 058
     Dates: start: 20170117, end: 20171206

REACTIONS (1)
  - Death [None]

NARRATIVE: CASE EVENT DATE: 20171206
